FAERS Safety Report 9014722 (Version 1)
Quarter: 2013Q1

REPORT INFORMATION
  Report Type: Spontaneous
  Country: BR (occurrence: BR)
  Receive Date: 20130115
  Receipt Date: 20130115
  Transmission Date: 20140127
  Serious: Yes (Other)
  Sender: FDA-Public Use
  Company Number: BR-009507513-1301BRA005692

PATIENT
  Age: 28 None
  Sex: Female
  Weight: 59 kg

DRUGS (1)
  1. NUVARING [Suspect]
     Dosage: UNK
     Route: 067
     Dates: start: 201101

REACTIONS (4)
  - Renal surgery [Recovered/Resolved]
  - Nephrolithiasis [Recovered/Resolved]
  - Papilloma viral infection [Not Recovered/Not Resolved]
  - Menstruation irregular [Not Recovered/Not Resolved]
